FAERS Safety Report 9932716 (Version 1)
Quarter: 2014Q1

REPORT INFORMATION
  Report Type: Spontaneous
  Country: US (occurrence: US)
  Receive Date: 20140228
  Receipt Date: 20140228
  Transmission Date: 20141002
  Serious: No
  Sender: FDA-Public Use
  Company Number: US-ABBVIE-13P-163-1062310-00

PATIENT
  Age: 74 Year
  Sex: Male
  Weight: 67.19 kg

DRUGS (8)
  1. ANDROGEL [Suspect]
     Indication: BLOOD TESTOSTERONE DECREASED
     Dosage: 1 PACKET
     Route: 061
     Dates: start: 2006
  2. CENTRUM [Concomitant]
     Indication: VITAMIN SUPPLEMENTATION
  3. OMEGA FISH OIL [Concomitant]
     Indication: VITAMIN SUPPLEMENTATION
  4. NIACIN [Concomitant]
     Indication: SUPPLEMENTATION THERAPY
  5. VITAMIN B 12 [Concomitant]
     Indication: VITAMIN SUPPLEMENTATION
  6. PRESERVISION [Concomitant]
     Indication: MACULAR DEGENERATION
  7. PRESERVISION [Concomitant]
     Indication: SUPPLEMENTATION THERAPY
  8. TIMOLOL [Concomitant]
     Indication: GLAUCOMA
     Route: 047

REACTIONS (5)
  - Application site rash [Unknown]
  - Rash papular [Recovered/Resolved]
  - Rash pruritic [Recovered/Resolved]
  - Dermatitis contact [Recovered/Resolved]
  - Application site urticaria [Recovered/Resolved]
